FAERS Safety Report 15361633 (Version 1)
Quarter: 2018Q3

REPORT INFORMATION
  Report Type: Report from Study
  Country: US (occurrence: US)
  Receive Date: 20180907
  Receipt Date: 20180907
  Transmission Date: 20181010
  Serious: Yes (Other)
  Sender: FDA-Public Use
  Company Number: PHHY2018US086198

PATIENT
  Age: 64 Year
  Sex: Female
  Weight: 61 kg

DRUGS (1)
  1. SANDOSTATIN LAR DEPOT [Suspect]
     Active Substance: OCTREOTIDE ACETATE
     Indication: PRODUCT USED FOR UNKNOWN INDICATION
     Dosage: 30 MG, UNK
     Route: 030
     Dates: start: 20131212, end: 20180323

REACTIONS (1)
  - Invasive ductal breast carcinoma [Recovered/Resolved]

NARRATIVE: CASE EVENT DATE: 20180326
